FAERS Safety Report 5819163-6 (Version None)
Quarter: 2008Q3

REPORT INFORMATION
  Report Type: 
  Country: None (occurrence: None)
  Receive Date: 20080723
  Receipt Date: 20080718
  Transmission Date: 20090109
  Serious: Yes (Death, Hospitalization)
  Sender: FDA-Public Use
  Company Number: A0738440A

PATIENT
  Age: 60 Year
  Sex: Female

DRUGS (8)
  1. ADVAIR DISKUS 100/50 [Suspect]
     Indication: ASTHMA
     Route: 065
  2. IMITREX [Suspect]
     Indication: MIGRAINE
     Route: 065
  3. VENTOLIN [Suspect]
     Indication: ASTHMA
     Route: 055
  4. INSULIN [Concomitant]
  5. DIURETIC [Concomitant]
  6. POTASSIUM CHLORIDE [Concomitant]
  7. VERAPAMIL [Concomitant]
  8. UNKNOWN MEDICATION [Concomitant]

REACTIONS (1)
  - DEATH [None]
